FAERS Safety Report 10675863 (Version 2)
Quarter: 2015Q1

REPORT INFORMATION
  Report Type: Report from Study
  Country: US (occurrence: US)
  Receive Date: 20141225
  Receipt Date: 20150115
  Transmission Date: 20150720
  Serious: Yes (Death)
  Sender: FDA-Public Use
  Company Number: US-BIOGENIDEC-2014BI133847

PATIENT
  Age: 62 Year
  Sex: Male

DRUGS (1)
  1. TYSABRI [Suspect]
     Active Substance: NATALIZUMAB
     Indication: MULTIPLE SCLEROSIS
     Route: 042
     Dates: start: 20120117, end: 20141118

REACTIONS (2)
  - Death [Fatal]
  - Myocardial infarction [Fatal]

NARRATIVE: CASE EVENT DATE: 20141212
